FAERS Safety Report 4621224-4 (Version None)
Quarter: 2005Q1

REPORT INFORMATION
  Report Type: 
  Country: None (occurrence: None)
  Receive Date: 20050322
  Receipt Date: 20050322
  Transmission Date: 20050727
  Serious: Yes (Death)
  Sender: FDA-Public Use
  Company Number: None

PATIENT
  Age: 58 Year
  Sex: Male
  Weight: 98.4306 kg

DRUGS (1)
  1. CLOZAPINE [Suspect]
     Indication: SCHIZOPHRENIA, PARANOID TYPE
     Dosage: 150 MG PO BID
     Route: 048
     Dates: start: 20041221, end: 20050124

REACTIONS (7)
  - ASTHMA [None]
  - BODY TEMPERATURE INCREASED [None]
  - BRONCHITIS [None]
  - DYSARTHRIA [None]
  - DYSPHAGIA [None]
  - INFLUENZA [None]
  - PNEUMONIA ASPIRATION [None]
